FAERS Safety Report 5511156-1 (Version None)
Quarter: 2007Q4

REPORT INFORMATION
  Report Type: 
  Country: None (occurrence: None)
  Receive Date: 20071109
  Receipt Date: 20071105
  Transmission Date: 20080405
  Serious: Yes (Other)
  Sender: FDA-Public Use
  Company Number: US-AVENTIS-200717810US

PATIENT
  Sex: Female
  Weight: 95.45 kg

DRUGS (3)
  1. LANTUS [Suspect]
     Dosage: DOSE: UNK
     Route: 051
  2. APIDRA [Suspect]
     Dosage: DOSE: UNK
  3. OPTICLIK (INSULIN INJECTION PEN) [Suspect]

REACTIONS (1)
  - WEIGHT INCREASED [None]
